FAERS Safety Report 4829558-5 (Version None)
Quarter: 2005Q4

REPORT INFORMATION
  Report Type: 
  Country: None (occurrence: None)
  Receive Date: 20051116
  Receipt Date: 20051104
  Transmission Date: 20060501
  Serious: Yes (Congenital Anomaly)
  Sender: FDA-Public Use
  Company Number: ES-JNJFOC-20051101842

PATIENT

DRUGS (1)
  1. TOPAMAX [Suspect]

REACTIONS (4)
  - CONGENITAL MUSCULOSKELETAL ANOMALY [None]
  - PHALANGEAL AGENESIS [None]
  - PHALANGEAL HYPOPLASIA [None]
  - SYNDACTYLY [None]
